FAERS Safety Report 16701184 (Version 1)
Quarter: 2019Q3

REPORT INFORMATION
  Report Type: Spontaneous
  Country: US (occurrence: US)
  Receive Date: 20190814
  Receipt Date: 20190814
  Transmission Date: 20191004
  Serious: No
  Sender: FDA-Public Use
  Company Number: US-TEVA-2019-US-1089959

PATIENT
  Sex: Female

DRUGS (1)
  1. ACITRETIN 091455 [Suspect]
     Active Substance: ACITRETIN
     Indication: PSORIASIS
     Dosage: 25 MILLIGRAM DAILY;
     Dates: start: 2019

REACTIONS (4)
  - Alopecia [Unknown]
  - Lip exfoliation [Unknown]
  - Skin irritation [Unknown]
  - Skin exfoliation [Unknown]
